FAERS Safety Report 9607639 (Version 1)
Quarter: 2013Q4

REPORT INFORMATION
  Report Type: Spontaneous
  Country: US (occurrence: None)
  Receive Date: 20131007
  Receipt Date: 20131007
  Transmission Date: 20140711
  Serious: Yes (Disabling)
  Sender: FDA-Public Use
  Company Number: None

PATIENT
  Age: 51 Year
  Sex: Male
  Weight: 72.58 kg

DRUGS (1)
  1. VICTOZA [Suspect]
     Indication: BLOOD GLUCOSE INCREASED
     Dosage: 1.2 MG, ONCE DAILY, GIVEN INTO/UNDER THE SKIN
     Dates: start: 20130213, end: 20130923

REACTIONS (1)
  - Heart injury [None]
